FAERS Safety Report 7576680 (Version 4)
Quarter: 2013Q3

REPORT INFORMATION
  Report Type: Spontaneous
  Country: GB (occurrence: GB)
  Receive Date: 20100908
  Receipt Date: 20130806
  Transmission Date: 20140515
  Serious: Yes (Hospitalization, Other)
  Sender: FDA-Public Use
  Company Number: PHFR2010GB02563

PATIENT
  Age: 63 Year
  Sex: Male

DRUGS (11)
  1. CLOZARIL [Suspect]
     Indication: SCHIZOPHRENIA
     Dosage: 400 MG, UNK
     Route: 048
     Dates: start: 20000113
  2. CLOZARIL [Suspect]
     Dosage: 300 MG, UNK
     Route: 048
  3. SIMVASTATIN [Concomitant]
     Indication: HYPERCHOLESTEROLAEMIA
     Dosage: 20 MG, UNK
     Route: 048
  4. AMLODIPINE [Concomitant]
     Indication: HYPERTENSION
     Dosage: 2.5 MG, UNK
     Route: 048
  5. AMLODIPINE [Concomitant]
     Dosage: 5 MG, UNK
  6. SENNA [Concomitant]
     Dosage: 7.5 MG, UNK
     Route: 048
  7. ASCORBIC ACID [Concomitant]
     Dosage: 10 MG, UNK
     Route: 048
  8. VITAMIN B6 [Concomitant]
     Dosage: 1 DF, UNK
     Route: 048
  9. VALPROATE SODIUM [Concomitant]
     Indication: EPILEPSY
     Dosage: 1000 MG, UNK
     Route: 048
  10. VALPROATE SODIUM [Concomitant]
     Dosage: 1200 MG, UNK
  11. SERTRALINE [Concomitant]
     Indication: DEPRESSION
     Dosage: 50 MG, UNK

REACTIONS (8)
  - Pulmonary oedema [Recovered/Resolved]
  - Dyspnoea [Recovered/Resolved]
  - Lymphoma [Unknown]
  - Infection [Recovered/Resolved]
  - Dementia [Unknown]
  - Non-Hodgkin^s lymphoma [Recovered/Resolved]
  - White blood cell count increased [Unknown]
  - Neutrophil count increased [Unknown]
